FAERS Safety Report 6094259-5 (Version None)
Quarter: 2009Q1

REPORT INFORMATION
  Report Type: 
  Country: None (occurrence: None)
  Receive Date: 20090223
  Receipt Date: 20090210
  Transmission Date: 20090719
  Serious: Yes (Disabling)
  Sender: FDA-Public Use
  Company Number: DK-1168428

PATIENT
  Age: 79 Year
  Sex: Female

DRUGS (6)
  1. CIPRO HC [Suspect]
     Indication: EAR DISORDER
     Dosage: 3 GTTS GD BID, AURICULAR (OTIC)
     Route: 001
     Dates: start: 20080826, end: 20080903
  2. PAMOL (PARACETAMOL) [Concomitant]
  3. ABALGIN  (DEXTROPROPOXYPHENE HYDROCHLORIDE) [Concomitant]
  4. LANSOPRAZOL (LANSOPRAZOLE) [Concomitant]
  5. IMOZOP (ZOPICLONE) [Concomitant]
  6. VAGIFEM [Concomitant]

REACTIONS (8)
  - BALANCE DISORDER [None]
  - DEAFNESS UNILATERAL [None]
  - DIZZINESS [None]
  - MASTOID DISORDER [None]
  - MIDDLE EAR DISORDER [None]
  - NAUSEA [None]
  - SUDDEN HEARING LOSS [None]
  - VOMITING [None]
